FAERS Safety Report 7996183-7 (Version None)
Quarter: 2011Q4

REPORT INFORMATION
  Report Type: 
  Country: None (occurrence: None)
  Receive Date: 20111220
  Receipt Date: 20111209
  Transmission Date: 20120403
  Serious: Yes (Other)
  Sender: FDA-Public Use
  Company Number: US-CELGENEUS-163-21880-11121526

PATIENT
  Sex: Male
  Weight: 72.64 kg

DRUGS (23)
  1. METFORMIN HCL [Concomitant]
     Route: 065
  2. NOVOLIN 70/30 [Concomitant]
     Route: 065
  3. NASONEX [Concomitant]
     Route: 065
  4. NIASPAN [Concomitant]
     Route: 065
  5. PROVENTIL [Concomitant]
     Route: 065
  6. XANAX [Concomitant]
     Route: 065
  7. ISOSORB [Concomitant]
     Route: 065
  8. RANEXA [Concomitant]
     Route: 065
  9. OXYCODONE HCL AND ACETAMINOPHEN [Concomitant]
     Route: 065
  10. ATENOLOL [Concomitant]
     Route: 065
  11. ASPIRIN [Concomitant]
     Route: 065
  12. PROZAC [Concomitant]
     Route: 065
  13. COUMADIN [Concomitant]
     Route: 065
  14. REVLIMID [Suspect]
     Indication: MULTIPLE MYELOMA
     Dosage: 25 MILLIGRAM
     Route: 048
     Dates: start: 20091209
  15. MEGACE [Concomitant]
     Route: 065
  16. OMEPRAZOLE [Concomitant]
     Route: 065
  17. AGGRENOX [Concomitant]
     Route: 065
  18. DECADRON [Concomitant]
     Route: 065
  19. LIPITOR [Concomitant]
     Route: 065
  20. LORCET-HD [Concomitant]
     Route: 065
  21. NITROGLYCERIN [Concomitant]
     Route: 065
  22. NORVASC [Concomitant]
     Route: 065
  23. PENICILLIN [Concomitant]
     Route: 065

REACTIONS (5)
  - RENAL CYST [None]
  - INTERNATIONAL NORMALISED RATIO FLUCTUATION [None]
  - LACERATION [None]
  - PROTHROMBIN TIME ABNORMAL [None]
  - BLOOD DISORDER [None]
